FAERS Safety Report 20137946 (Version 2)
Quarter: 2022Q1

REPORT INFORMATION
  Report Type: Report from Study
  Country: JP (occurrence: JP)
  Receive Date: 20211202
  Receipt Date: 20220302
  Transmission Date: 20220423
  Serious: Yes (Other)
  Sender: FDA-Public Use
  Company Number: ENDG21-07528

PATIENT
  Age: 59 Year
  Sex: Male
  Weight: 59.5 kg

DRUGS (28)
  1. METHOTREXATE [Suspect]
     Active Substance: METHOTREXATE
     Indication: Rheumatoid arthritis
     Dosage: 8 MILLIGRAM, WEEKLY
     Route: 048
     Dates: start: 20161101, end: 20161122
  2. METHOTREXATE [Suspect]
     Active Substance: METHOTREXATE
     Dosage: 12 MILLIGRAM, WEEKLY
     Route: 048
     Dates: start: 20161129, end: 20161220
  3. METHOTREXATE [Suspect]
     Active Substance: METHOTREXATE
     Dosage: 16 MILLIGRAM, WEEKLY
     Route: 048
     Dates: start: 20161227, end: 20170315
  4. METHOTREXATE [Suspect]
     Active Substance: METHOTREXATE
     Dosage: 15 MILLIGRAM, WEEKLY
     Route: 048
     Dates: start: 20170322, end: 20170628
  5. METHOTREXATE [Suspect]
     Active Substance: METHOTREXATE
     Dosage: 16 MILLIGRAM, WEEKLY
     Route: 048
     Dates: start: 20170919, end: 20181113
  6. METHOTREXATE [Suspect]
     Active Substance: METHOTREXATE
     Dosage: 6 MILLIGRAM, WEEKLY
     Route: 048
     Dates: start: 20210213, end: 20210508
  7. METHOTREXATE [Suspect]
     Active Substance: METHOTREXATE
     Dosage: 6 MILLIGRAM, WEEKLY
     Route: 048
     Dates: start: 20210515
  8. UPADACITINIB [Suspect]
     Active Substance: UPADACITINIB
     Indication: Rheumatoid arthritis
     Dosage: 30 MILLIGRAM, PER DAY
     Route: 048
     Dates: start: 20170630, end: 20191220
  9. UPADACITINIB [Suspect]
     Active Substance: UPADACITINIB
     Dosage: 15 MILLIGRAM, PER DAY
     Route: 048
     Dates: start: 20191221, end: 20211109
  10. INDOMETHACIN [Concomitant]
     Active Substance: INDOMETHACIN
     Indication: Rheumatoid arthritis
     Dosage: UNK
     Route: 065
     Dates: start: 20161115, end: 20170217
  11. INDOMETHACIN [Concomitant]
     Active Substance: INDOMETHACIN
     Dosage: 3 DOSAGE FORM, TID
     Route: 061
     Dates: start: 20170217
  12. INDOMETHACIN [Concomitant]
     Active Substance: INDOMETHACIN
     Dosage: UNK
     Route: 061
  13. KETOPROFEN [Concomitant]
     Active Substance: KETOPROFEN
     Indication: Rheumatoid arthritis
     Dosage: 80 MILLIGRAM, PRN
     Route: 061
     Dates: start: 20161031, end: 20170216
  14. KETOPROFEN [Concomitant]
     Active Substance: KETOPROFEN
     Dosage: 120 MILLIGRAM, PER DAY
     Route: 061
     Dates: start: 20170217, end: 20171115
  15. KETOPROFEN [Concomitant]
     Active Substance: KETOPROFEN
     Dosage: 40 MILLIGRAM, 1 AS REQUIRED
     Route: 061
     Dates: start: 20181119
  16. CELECOXIB [Concomitant]
     Active Substance: CELECOXIB
     Indication: Rheumatoid arthritis
     Dosage: 200 MILLIGRAM, BID
     Route: 048
     Dates: start: 20161031, end: 20181116
  17. CELECOXIB [Concomitant]
     Active Substance: CELECOXIB
     Dosage: 200 MILLIGRAM, PRN (1 AS REQUIRED)
     Route: 048
     Dates: start: 20190306, end: 20211203
  18. TRAMADOL HYDROCHLORIDE [Concomitant]
     Active Substance: TRAMADOL HYDROCHLORIDE
     Indication: Rheumatoid arthritis
     Dosage: 100 MILLIGRAM, ONE DAY
     Route: 048
     Dates: start: 20161207, end: 20181117
  19. TRAMADOL HYDROCHLORIDE [Concomitant]
     Active Substance: TRAMADOL HYDROCHLORIDE
     Dosage: 100 MILLIGRAM, ONE DAY
     Route: 048
     Dates: start: 20201009
  20. FOLIC ACID [Concomitant]
     Active Substance: FOLIC ACID
     Indication: Prophylaxis
     Dosage: 5 MILLIGRAM, WEEKLY
     Route: 048
     Dates: start: 20161103, end: 20170630
  21. FOLIC ACID [Concomitant]
     Active Substance: FOLIC ACID
     Dosage: 5 MILLIGRAM, WEEKLY
     Route: 048
     Dates: start: 20170921, end: 20181115
  22. FOLIC ACID [Concomitant]
     Active Substance: FOLIC ACID
     Dosage: 5 MILLIGRAM, WEEKLY (0.7143 MG (5 MG, 1 IN 1 WK))
     Route: 048
     Dates: start: 20210215
  23. PREDONINE [Concomitant]
     Active Substance: PREDNISOLONE
     Indication: Rheumatoid arthritis
     Dosage: UNK
     Route: 065
     Dates: start: 20161101, end: 20170209
  24. PREDONINE [Concomitant]
     Active Substance: PREDNISOLONE
     Dosage: 2.5 MILLIGRAM, ONE DAY
     Route: 048
     Dates: start: 20200912, end: 20201008
  25. PREDONINE [Concomitant]
     Active Substance: PREDNISOLONE
     Dosage: 2.5 MILLIGRAM, PER DAY
     Route: 048
     Dates: start: 20201009, end: 20201119
  26. PREDONINE [Concomitant]
     Active Substance: PREDNISOLONE
     Dosage: 2.5 MILLIGRAM, PRN (1 AS REQUIRED)
     Route: 048
     Dates: start: 20201120, end: 20210416
  27. PREDONINE [Concomitant]
     Active Substance: PREDNISOLONE
     Dosage: 5 MILLIGRAM, PER DAY
     Route: 048
     Dates: start: 20210417, end: 20210504
  28. PREDONINE [Concomitant]
     Active Substance: PREDNISOLONE
     Dosage: 2.5 MILLIGRAM, PER DAY
     Route: 048
     Dates: start: 20210515, end: 20211124

REACTIONS (1)
  - Prostate cancer [Not Recovered/Not Resolved]

NARRATIVE: CASE EVENT DATE: 20211105
